FAERS Safety Report 8603245-X (Version None)
Quarter: 2012Q3

REPORT INFORMATION
  Report Type: 
  Country: None (occurrence: None)
  Receive Date: 20120817
  Receipt Date: 20120808
  Transmission Date: 20120928
  Serious: Yes (Hospitalization)
  Sender: FDA-Public Use
  Company Number: US-ACTELION-A-NJ2012-69235

PATIENT
  Age: 53 Year
  Sex: Female

DRUGS (1)
  1. EPOPROSTENOL SODIUM [Suspect]
     Indication: PORTOPULMONARY HYPERTENSION
     Dosage: 10.5 NG/KG, PER MIN
     Route: 041
     Dates: start: 20110826

REACTIONS (4)
  - DECUBITUS ULCER [None]
  - INFECTION [None]
  - DRUG DOSE OMISSION [None]
  - MENTAL STATUS CHANGES [None]
